FAERS Safety Report 13166222 (Version 2)
Quarter: 2017Q2

REPORT INFORMATION
  Report Type: Report from Study
  Country: US (occurrence: US)
  Receive Date: 20170131
  Receipt Date: 20170407
  Transmission Date: 20170830
  Serious: Yes (Other)
  Sender: FDA-Public Use
  Company Number: US-TAKEDA-2017TUS002003

PATIENT
  Sex: Male
  Weight: 89.34 kg

DRUGS (3)
  1. VEDOLIZUMAB [Suspect]
     Active Substance: VEDOLIZUMAB
     Dosage: 300 MG, Q4WEEKS
     Route: 042
  2. VEDOLIZUMAB [Suspect]
     Active Substance: VEDOLIZUMAB
     Indication: CROHN^S DISEASE
     Dosage: 300 MG, UNK
     Route: 042
     Dates: start: 201407
  3. 6-MP [Concomitant]
     Active Substance: MERCAPTOPURINE
     Indication: CROHN^S DISEASE
     Dosage: 75 MG, QD
     Route: 048
     Dates: start: 20161202

REACTIONS (4)
  - Inappropriate schedule of drug administration [Unknown]
  - Anal abscess [Recovered/Resolved]
  - Drug ineffective [Unknown]
  - Sepsis [Recovered/Resolved]
